FAERS Safety Report 24446719 (Version 1)
Quarter: 2024Q4

REPORT INFORMATION
  Report Type: Spontaneous
  Country: NL (occurrence: NL)
  Receive Date: 20241016
  Receipt Date: 20241016
  Transmission Date: 20250115
  Serious: Yes (Hospitalization, Other)
  Sender: MERCK
  Company Number: None

PATIENT
  Age: 71 Year
  Sex: Male
  Weight: 71.4 kg

DRUGS (12)
  1. KEYTRUDA [Suspect]
     Active Substance: PEMBROLIZUMAB
     Indication: Bladder cancer
     Dosage: 200 MG ONCE EVERY 3 WEEKS
     Dates: start: 20240926
  2. FUROSEMIDE [Suspect]
     Active Substance: FUROSEMIDE
     Indication: Cardiac failure
     Dosage: 2 DD
     Dates: start: 20240926, end: 20241002
  3. OXYCODONE [Concomitant]
     Active Substance: OXYCODONE
     Dosage: 10 MILLIGRAM
  4. EPLERENONE [Concomitant]
     Active Substance: EPLERENONE
     Dosage: TABLET, 25 MG (MILLIGRAM)
  5. MOVICOLON [Concomitant]
     Active Substance: POLYETHYLENE GLYCOL 3350\POTASSIUM CHLORIDE\SODIUM BICARBONATE\SODIUM CHLORIDE
     Dosage: POWDER FOR DRINK
  6. ISOPHANE INSULIN [Concomitant]
     Active Substance: INSULIN NOS
     Dosage: SUSPENSION FOR INJECTION, 100 IU/ML (UNITS PER MILLILITER)
  7. DAPAGLIFLOZIN [Concomitant]
     Active Substance: DAPAGLIFLOZIN
     Dosage: TABLET, 10 MG (MILLIGRAM)
  8. ATORVASTATIN [Concomitant]
     Active Substance: ATORVASTATIN
     Dosage: UNK MILLIGRAM
  9. MIRABEGRON [Concomitant]
     Active Substance: MIRABEGRON
     Dosage: MODIFIED-RELEASE TABLET, 50 MG (MILLIGRAM)
  10. BISOPROLOL [Concomitant]
     Active Substance: BISOPROLOL\BISOPROLOL FUMARATE
     Dosage: TABLET, 2.5 MG (MILLIGRAM)
  11. APIXABAN [Concomitant]
     Active Substance: APIXABAN
     Dosage: TABLET, 5 MG (MILLIGRAM)
  12. METFORMIN [Concomitant]
     Active Substance: METFORMIN HYDROCHLORIDE
     Dosage: TABLET WITH REGULATED RELEASE, 500 MG (MILLIGRAM)

REACTIONS (1)
  - Renal failure [Unknown]
